FAERS Safety Report 9029996 (Version 2)
Quarter: 2013Q1

REPORT INFORMATION
  Report Type: Spontaneous
  Country: US (occurrence: US)
  Receive Date: 20130125
  Receipt Date: 20130225
  Transmission Date: 20140127
  Serious: No
  Sender: FDA-Public Use
  Company Number: US-BIOGENIDEC-2013BI005048

PATIENT
  Sex: Male

DRUGS (1)
  1. TYSABRI [Suspect]
     Indication: MULTIPLE SCLEROSIS
     Route: 042
     Dates: start: 20090717, end: 20121228

REACTIONS (4)
  - Mobility decreased [Not Recovered/Not Resolved]
  - Disease progression [Unknown]
  - Muscle disorder [Unknown]
  - Multiple sclerosis [Not Recovered/Not Resolved]
